FAERS Safety Report 22966114 (Version 2)
Quarter: 2023Q4

REPORT INFORMATION
  Report Type: Spontaneous
  Country: GB (occurrence: GB)
  Receive Date: 20230921
  Receipt Date: 20231006
  Transmission Date: 20240110
  Serious: Yes (Other)
  Sender: FDA-Public Use
  Company Number: GB-GILEAD-2023-0644359

PATIENT
  Age: 66 Year
  Sex: Male

DRUGS (5)
  1. TENOFOVIR DISOPROXIL FUMARATE [Suspect]
     Active Substance: TENOFOVIR DISOPROXIL FUMARATE
     Indication: HIV infection
     Dosage: UNK
     Route: 065
     Dates: start: 201401
  2. EMTRICITABINE [Concomitant]
     Active Substance: EMTRICITABINE
  3. LAMIVUDINE [Concomitant]
     Active Substance: LAMIVUDINE
  4. RILPIVIRINE [Concomitant]
     Active Substance: RILPIVIRINE
  5. RALTEGRAVIR [Concomitant]
     Active Substance: RALTEGRAVIR

REACTIONS (2)
  - Immune reconstitution inflammatory syndrome [Recovered/Resolved]
  - Autoimmune hepatitis [Recovered/Resolved]
